FAERS Safety Report 14148163 (Version 6)
Quarter: 2018Q1

REPORT INFORMATION
  Report Type: Report from Study
  Country: US (occurrence: US)
  Receive Date: 20171101
  Receipt Date: 20180209
  Transmission Date: 20180508
  Serious: Yes (Hospitalization)
  Sender: FDA-Public Use
  Company Number: US-ROCHE-2013591

PATIENT
  Age: 57 Year
  Sex: Female
  Weight: 60.4 kg

DRUGS (16)
  1. CYCLOPHOSPHAMIDE. [Suspect]
     Active Substance: CYCLOPHOSPHAMIDE
     Indication: B-CELL LYMPHOMA
     Dosage: ON 23/JUN/2016 AT 19:02, THE PATIENT RECEIVED MOST RECENT DOSE OF CYCLOPHOSPHAMIDE AT 1200 MG.
     Route: 042
     Dates: start: 20160311
  2. PREDNISONE. [Suspect]
     Active Substance: PREDNISONE
     Indication: B-CELL LYMPHOMA
     Dosage: PREDNISONE 100 MG PER DAY ORALLY ON DAYS 1-5 OF EACH 21-DAY CYCLE UP TO CYCLE 6.?ON 27/JUN/2016, THE
     Route: 048
     Dates: start: 20160311
  3. ATIVAN [Concomitant]
     Active Substance: LORAZEPAM
     Indication: ANXIETY
  4. ATIVAN [Concomitant]
     Active Substance: LORAZEPAM
     Indication: NAUSEA
  5. AMBIEN [Concomitant]
     Active Substance: ZOLPIDEM TARTRATE
     Indication: INSOMNIA
     Route: 065
     Dates: start: 20160331
  6. OBINUTUZUMAB. [Suspect]
     Active Substance: OBINUTUZUMAB
     Indication: B-CELL LYMPHOMA
     Dosage: ON 11/AUG/2016 AT 11:20, THE PATIENT RECEIVED MOST RECENT DOSE OF OBINUTUZUMAB AT 1000 MG.
     Route: 042
     Dates: start: 20160311
  7. DOXORUBICIN [Suspect]
     Active Substance: DOXORUBICIN
     Indication: B-CELL LYMPHOMA
     Dosage: ON 23/JUN/2016 AT 18:42, THE PATIENT RECEIVED MOST RECENT DOSE OF DOXORUBICIN AT 50 MG/M2.
     Route: 042
     Dates: start: 20160311
  8. VINCRISTINE [Suspect]
     Active Substance: VINCRISTINE
     Indication: B-CELL LYMPHOMA
     Dosage: ON 03/JUN/2016 AT 18:51, THE PATIENT RECEIVED MOST RECENT DOSE OF VINCRISTINE AT 2 MG.
     Route: 042
     Dates: start: 20160311
  9. PREDNISONE. [Suspect]
     Active Substance: PREDNISONE
     Indication: DIFFUSE LARGE B-CELL LYMPHOMA
  10. ACYCLOVIR. [Concomitant]
     Active Substance: ACYCLOVIR
     Indication: PROPHYLAXIS
     Route: 065
     Dates: start: 20160304
  11. CYCLOPHOSPHAMIDE. [Suspect]
     Active Substance: CYCLOPHOSPHAMIDE
     Indication: DIFFUSE LARGE B-CELL LYMPHOMA
  12. VENETOCLAX. [Suspect]
     Active Substance: VENETOCLAX
     Indication: B-CELL LYMPHOMA
     Dosage: INITIALLY VENETOCLAX ADMINISTERED AT A DOSE BETWEEN 200 MG TO 800 MG TABLET ORALLY FOR ONCE DAILY.?O
     Route: 048
     Dates: start: 20160314
  13. VENETOCLAX. [Suspect]
     Active Substance: VENETOCLAX
     Indication: DIFFUSE LARGE B-CELL LYMPHOMA
  14. DOXORUBICIN [Suspect]
     Active Substance: DOXORUBICIN
     Indication: DIFFUSE LARGE B-CELL LYMPHOMA
  15. OBINUTUZUMAB. [Suspect]
     Active Substance: OBINUTUZUMAB
     Indication: DIFFUSE LARGE B-CELL LYMPHOMA
  16. VINCRISTINE [Suspect]
     Active Substance: VINCRISTINE
     Indication: DIFFUSE LARGE B-CELL LYMPHOMA

REACTIONS (1)
  - Oophoritis [Recovered/Resolved]

NARRATIVE: CASE EVENT DATE: 20171022
